FAERS Safety Report 17923249 (Version 1)
Quarter: 2020Q2

REPORT INFORMATION
  Report Type: Spontaneous
  Country: DE (occurrence: DE)
  Receive Date: 20200622
  Receipt Date: 20200622
  Transmission Date: 20200714
  Serious: Yes (Hospitalization)
  Sender: FDA-Public Use
  Company Number: DE-TEVA-2020-DE-1789068

PATIENT
  Age: 69 Year
  Sex: Male

DRUGS (12)
  1. RAMIPRIL. [Concomitant]
     Active Substance: RAMIPRIL
     Dosage: 2.5 MG, 1-0-1-0, UNIT DOSE: 0.5 MG
  2. METAMIZOL [Concomitant]
     Active Substance: METAMIZOLE SODIUM
     Dosage: 1500 MILLIGRAM DAILY; 500 MG, 1-1-1-0
  3. CALCIUM/COLECALCIFEROL [Concomitant]
     Active Substance: CALCIUM\CHOLECALCIFEROL
     Dosage: 1 DOSAGE FORMS DAILY; 1-0-0-0
  4. ACETYLSALICYLSAURE [Concomitant]
     Active Substance: ASPIRIN
     Dosage: 100 MILLIGRAM DAILY; 1-0-0-0
  5. TORASEMID [Concomitant]
     Active Substance: TORSEMIDE
     Dosage: 5 MILLIGRAM DAILY; 1-0-0-0
  6. DUAKLIR GENUAIR 340MIKROGRAMM/12MIKROGRAMM [Concomitant]
     Dosage: 2 DOSAGE FORMS DAILY; 343.39 | 12 MCG, 1-0-1-0
  7. LEVOTHYROXIN-NATRIUM [Concomitant]
     Active Substance: LEVOTHYROXINE SODIUM
     Dosage: 50 MICROGRAM DAILY; 1-0-0-0
  8. SALBUTAMOL [Concomitant]
     Active Substance: ALBUTEROL
     Dosage: 0.1 MG, NEED
  9. BISOPROLOL [Suspect]
     Active Substance: BISOPROLOL
     Dosage: 5 MILLIGRAM DAILY; 5 MG, 0.5-0-0.5-0, UNIT DOSE:  2.5 MG
  10. PANTOPRAZOL [Concomitant]
     Active Substance: PANTOPRAZOLE SODIUM
     Dosage: 20 MILLIGRAM DAILY; 1-0-0-0
  11. NALOXON/TILIDIN [Concomitant]
     Dosage: 2 DOSAGE FORMS DAILY; 4|50 MG, 1-0-1-0
  12. SAUERSTOFF [Concomitant]
     Active Substance: OXYGEN
     Dosage: 3 L/MIN

REACTIONS (3)
  - Cyanosis [Unknown]
  - Wheezing [Unknown]
  - Dyspnoea [Unknown]
